FAERS Safety Report 6732073-5 (Version None)
Quarter: 2010Q2

REPORT INFORMATION
  Report Type: 
  Country: None (occurrence: None)
  Receive Date: 20100519
  Receipt Date: 20100510
  Transmission Date: 20101027
  Serious: Yes (Hospitalization)
  Sender: FDA-Public Use
  Company Number: CA-BRISTOL-MYERS SQUIBB COMPANY-15098544

PATIENT
  Age: 47 Year
  Sex: Male
  Weight: 130 kg

DRUGS (6)
  1. WARFARIN SODIUM [Suspect]
     Indication: GANGRENE
  2. WARFARIN SODIUM [Suspect]
     Indication: ATRIAL FIBRILLATION
  3. METOPROLOL TARTRATE [Suspect]
     Indication: GANGRENE
  4. METOPROLOL TARTRATE [Suspect]
     Indication: ATRIAL FIBRILLATION
  5. AMIODARONE HCL [Suspect]
     Indication: GANGRENE
  6. AMIODARONE HCL [Suspect]
     Indication: ATRIAL FIBRILLATION

REACTIONS (1)
  - CALCIPHYLAXIS [None]
